FAERS Safety Report 18055634 (Version 5)
Quarter: 2020Q3

REPORT INFORMATION
  Report Type: Spontaneous
  Country: FR (occurrence: FR)
  Receive Date: 20200722
  Receipt Date: 20200922
  Transmission Date: 20201103
  Serious: Yes (Death, Hospitalization, Other)
  Sender: FDA-Public Use
  Company Number: FR-BIOGEN-2020BI00898608

PATIENT
  Age: 30 Year
  Sex: Female

DRUGS (8)
  1. RITUXIMAB. [Suspect]
     Active Substance: RITUXIMAB
     Route: 065
     Dates: start: 201803, end: 201809
  2. METHYLPREDNISOLONE. [Suspect]
     Active Substance: METHYLPREDNISOLONE
     Indication: ENTEROVIRUS INFECTION
     Route: 065
  3. TYSABRI [Suspect]
     Active Substance: NATALIZUMAB
     Indication: MULTIPLE SCLEROSIS
     Route: 065
     Dates: start: 201306, end: 201410
  4. RITUXIMAB. [Suspect]
     Active Substance: RITUXIMAB
     Route: 065
  5. PREDNISOLONE. [Suspect]
     Active Substance: PREDNISOLONE
     Indication: ENTEROVIRUS INFECTION
     Route: 048
  6. RITUXIMAB. [Suspect]
     Active Substance: RITUXIMAB
     Route: 065
     Dates: start: 201809
  7. RITUXIMAB. [Suspect]
     Active Substance: RITUXIMAB
     Indication: ANTIBODY TEST ABNORMAL
     Route: 065
     Dates: start: 201507
  8. RITUXIMAB. [Suspect]
     Active Substance: RITUXIMAB
     Route: 065
     Dates: start: 201607, end: 201706

REACTIONS (26)
  - Therapeutic product effect incomplete [Fatal]
  - Respiratory failure [Fatal]
  - Sepsis [Fatal]
  - Coxsackie viral infection [Fatal]
  - Viral myocarditis [Fatal]
  - Renal failure [Unknown]
  - Meningitis coxsackie viral [Fatal]
  - Cardiogenic shock [Fatal]
  - Autoimmune demyelinating disease [Fatal]
  - Neurological decompensation [Fatal]
  - Myelitis [Fatal]
  - Product use in unapproved indication [Fatal]
  - Meningitis coxsackie viral [Fatal]
  - Coxsackie myocarditis [Fatal]
  - Dysmetria [Fatal]
  - Meningitis enteroviral [Fatal]
  - Arrhythmia [Fatal]
  - Nausea [Fatal]
  - Off label use [Fatal]
  - Optic neuritis [Fatal]
  - Intentional product use issue [Fatal]
  - Ataxia [Fatal]
  - Dysarthria [Fatal]
  - Maternal exposure during pregnancy [Fatal]
  - Bacterial sepsis [Fatal]
  - Vomiting [Fatal]

NARRATIVE: CASE EVENT DATE: 2015
